FAERS Safety Report 4638144-1 (Version None)
Quarter: 2005Q2

REPORT INFORMATION
  Report Type: 
  Country: None (occurrence: None)
  Receive Date: 20050415
  Receipt Date: 20050404
  Transmission Date: 20051028
  Serious: Yes (Other)
  Sender: FDA-Public Use
  Company Number: 2005055576

PATIENT
  Age: 83 Year
  Sex: Female
  Weight: 72.5755 kg

DRUGS (6)
  1. XALATAN [Suspect]
     Indication: GLAUCOMA
     Dosage: 2 DROP (1 IN 1 D) OPTHALAMIC
     Route: 047
  2. TIMOLOL MALEATE [Concomitant]
  3. FLUOXETINE HCL [Concomitant]
  4. BISOPROLOL FUMARATE AND HYDROCHLOROTHIAZIDE [Concomitant]
  5. FAMOTIDINE [Concomitant]
  6. LORAZEPAM [Concomitant]

REACTIONS (1)
  - VISUAL ACUITY REDUCED [None]
